FAERS Safety Report 7269514-3 (Version None)
Quarter: 2011Q1

REPORT INFORMATION
  Report Type: 
  Country: None (occurrence: None)
  Receive Date: 20110202
  Receipt Date: 20101118
  Transmission Date: 20110831
  Serious: Yes (Hospitalization)
  Sender: FDA-Public Use
  Company Number: US-BAYER-201027639NA

PATIENT
  Sex: Female
  Weight: 73 kg

DRUGS (8)
  1. YAZ [Suspect]
     Indication: PREMENSTRUAL SYNDROME
  2. ACETAMINOPHEN [Concomitant]
  3. VITAMIN K TAB [Concomitant]
  4. YAZ [Suspect]
     Indication: MENSTRUAL CYCLE MANAGEMENT
     Route: 048
     Dates: start: 20070401, end: 20070701
  5. IBUPROFEN [Concomitant]
     Dosage: 800 MG, UNK
     Dates: start: 20070726
  6. ASPIRIN [Concomitant]
  7. YAZ [Suspect]
     Indication: ORAL CONTRACEPTION
  8. UNCODEABLE ^UNCLASSIFIABLE^ [Concomitant]

REACTIONS (17)
  - CHEST DISCOMFORT [None]
  - DEEP VEIN THROMBOSIS [None]
  - ANXIETY [None]
  - PAIN IN EXTREMITY [None]
  - DYSPNOEA [None]
  - ARTHRALGIA [None]
  - RESPIRATORY TRACT CONGESTION [None]
  - PULMONARY EMBOLISM [None]
  - PAIN [None]
  - HYPOAESTHESIA [None]
  - PANIC ATTACK [None]
  - OEDEMA PERIPHERAL [None]
  - MUSCULOSKELETAL STIFFNESS [None]
  - FACIAL PAIN [None]
  - SENSATION OF HEAVINESS [None]
  - SWELLING [None]
  - CHEST PAIN [None]
